FAERS Safety Report 25187580 (Version 1)
Quarter: 2025Q2

REPORT INFORMATION
  Report Type: Spontaneous
  Country: GB (occurrence: GB)
  Receive Date: 20250411
  Receipt Date: 20250411
  Transmission Date: 20250716
  Serious: Yes (Other)
  Sender: MSN LABORATORIES
  Company Number: None

PATIENT

DRUGS (2)
  1. PREGABALIN [Suspect]
     Active Substance: PREGABALIN
     Indication: Pain in jaw
     Dosage: 200MG TWICE A DAY
     Route: 065
     Dates: start: 202402, end: 2025
  2. NAPROXEN [Concomitant]
     Active Substance: NAPROXEN
     Indication: Pain in jaw
     Route: 065
     Dates: start: 202411, end: 20250331

REACTIONS (1)
  - Lip blister [Recovered/Resolved]

NARRATIVE: CASE EVENT DATE: 20241201
